FAERS Safety Report 9382268 (Version 1)
Quarter: 2013Q3

REPORT INFORMATION
  Report Type: Spontaneous
  Country: US (occurrence: None)
  Receive Date: 20130702
  Receipt Date: 20130702
  Transmission Date: 20140515
  Serious: No
  Sender: FDA-Public Use
  Company Number: None

PATIENT
  Age: 66 Year
  Sex: Female
  Weight: 40.37 kg

DRUGS (1)
  1. AFINITOR [Suspect]
     Indication: LUNG NEOPLASM MALIGNANT
     Dosage: 10MG QD PO
     Route: 048
     Dates: start: 20130225, end: 20130701

REACTIONS (3)
  - Dyspnoea [None]
  - Malignant neoplasm progression [None]
  - Lung neoplasm malignant [None]
